FAERS Safety Report 9223203 (Version 3)
Quarter: 2013Q2

REPORT INFORMATION
  Report Type: Spontaneous
  Country: JP (occurrence: JP)
  Receive Date: 20130410
  Receipt Date: 20130425
  Transmission Date: 20140414
  Serious: Yes (Life-Threatening)
  Sender: FDA-Public Use
  Company Number: JP-BAYER-2013-045267

PATIENT
  Sex: Female

DRUGS (1)
  1. ACETYLSALICYLIC ACID({=100 MG) [Suspect]
     Dosage: 200 DF, QD
     Route: 048

REACTIONS (3)
  - Hepatitis fulminant [Recovering/Resolving]
  - Renal failure acute [Recovering/Resolving]
  - Intentional overdose [None]
